FAERS Safety Report 6149187-3 (Version None)
Quarter: 2009Q2

REPORT INFORMATION
  Report Type: 
  Country: None (occurrence: None)
  Receive Date: 20090407
  Receipt Date: 20090326
  Transmission Date: 20091009
  Serious: Yes (Other)
  Sender: FDA-Public Use
  Company Number: 060008K09USA

PATIENT
  Sex: Female

DRUGS (1)
  1. SEROPHENE [Suspect]
     Indication: INFERTILITY FEMALE

REACTIONS (2)
  - CYST [None]
  - PAIN [None]
